FAERS Safety Report 19526298 (Version 1)
Quarter: 2021Q3

REPORT INFORMATION
  Report Type: Spontaneous
  Country: US (occurrence: US)
  Receive Date: 20210713
  Receipt Date: 20210713
  Transmission Date: 20211014
  Serious: Yes (Life-Threatening, Hospitalization, Disabling)
  Sender: FDA-Public Use
  Company Number: None

PATIENT
  Age: 37 Year
  Sex: Male
  Weight: 69.75 kg

DRUGS (2)
  1. BIKTARVY [Suspect]
     Active Substance: BICTEGRAVIR SODIUM\EMTRICITABINE\TENOFOVIR ALAFENAMIDE FUMARATE
     Indication: HIV INFECTION
     Dosage: ?          QUANTITY:1 TABLET(S);?
     Route: 048
     Dates: start: 20200704, end: 20210302
  2. MULTIVITAMIN [Concomitant]
     Active Substance: VITAMINS

REACTIONS (11)
  - Fall [None]
  - Night sweats [None]
  - Headache [None]
  - Irritability [None]
  - Psoriasis [None]
  - Pyrexia [None]
  - Cognitive disorder [None]
  - Hypersomnia [None]
  - Skin cancer [None]
  - Femur fracture [None]
  - Therapy cessation [None]

NARRATIVE: CASE EVENT DATE: 20210226
